FAERS Safety Report 21334403 (Version 1)
Quarter: 2022Q3

REPORT INFORMATION
  Report Type: Spontaneous
  Country: US (occurrence: None)
  Receive Date: 20220914
  Receipt Date: 20220914
  Transmission Date: 20221026
  Serious: Yes (Death)
  Sender: FDA-Public Use
  Company Number: None

PATIENT
  Sex: Male

DRUGS (5)
  1. AMBRISENTAN [Suspect]
     Active Substance: AMBRISENTAN
     Indication: Drug dependence
     Dosage: FREQUENCY : DAILY;?
     Route: 048
  2. CLONAZEPAM [Concomitant]
     Active Substance: CLONAZEPAM
  3. BUPRENORPHINE HYDROCHLORI [Concomitant]
  4. LETAIRIS [Concomitant]
     Active Substance: AMBRISENTAN
  5. COLCHICINE [Concomitant]
     Active Substance: COLCHICINE

REACTIONS (1)
  - Death [None]
